FAERS Safety Report 15260880 (Version 3)
Quarter: 2018Q3

REPORT INFORMATION
  Report Type: Spontaneous
  Country: FR (occurrence: FR)
  Receive Date: 20180809
  Receipt Date: 20180911
  Transmission Date: 20181010
  Serious: Yes (Life-Threatening, Other)
  Sender: FDA-Public Use
  Company Number: FR-PFIZER INC-2018316217

PATIENT
  Age: 50 Year
  Sex: Male

DRUGS (5)
  1. EPINEPHRINE. [Suspect]
     Active Substance: EPINEPHRINE
     Indication: LIFE SUPPORT
     Dosage: 1 MG, UNK (STARTED FOR 2 MINUTES)
     Route: 040
  2. CISATRACURIUM. [Concomitant]
     Active Substance: CISATRACURIUM
     Dosage: UNK (BOLUS)
     Route: 040
  3. PROPOFOL. [Suspect]
     Active Substance: PROPOFOL
     Indication: INDUCTION OF ANAESTHESIA
     Dosage: UNK (CONTINUOUS INFUSION)
  4. SUFENTANIL [Suspect]
     Active Substance: SUFENTANIL
     Indication: INDUCTION OF ANAESTHESIA
     Dosage: UNK (CONTROL CONTINUOUS INFUSION)
  5. NOREPINEPHRINE BITARTRATE. [Suspect]
     Active Substance: NOREPINEPHRINE BITARTRATE
     Indication: MEAN ARTERIAL PRESSURE DECREASED
     Dosage: 0.1 UG/KG, UNK (INFUSION (0.1 UG/KG/MIN)

REACTIONS (1)
  - Stress cardiomyopathy [Recovered/Resolved]
